FAERS Safety Report 8207295-7 (Version None)
Quarter: 2012Q1

REPORT INFORMATION
  Report Type: 
  Country: None (occurrence: None)
  Receive Date: 20120314
  Receipt Date: 20120301
  Transmission Date: 20120608
  Serious: Yes (Other)
  Sender: FDA-Public Use
  Company Number: TR-VALEANT-2012VX001065

PATIENT
  Age: 57 Year

DRUGS (6)
  1. FLUOROURACIL [Suspect]
     Indication: BREAST CANCER
     Route: 065
  2. DOXORUBICIN HCL [Suspect]
     Indication: BREAST CANCER
     Route: 065
  3. TRASTUZUMAB [Concomitant]
     Route: 065
  4. CYCLOPHOSPHAMIDE [Suspect]
     Indication: BREAST CANCER
     Route: 065
  5. ANASTROZOLE [Concomitant]
     Route: 065
  6. THERAPEUTIC RADIOPHARMACEUTICALS [Suspect]
     Indication: BREAST CANCER
     Route: 065

REACTIONS (1)
  - MULTIPLE MYELOMA [None]
